FAERS Safety Report 6518648-7 (Version None)
Quarter: 2009Q4

REPORT INFORMATION
  Report Type: 
  Country: None (occurrence: None)
  Receive Date: 20091228
  Receipt Date: 20091217
  Transmission Date: 20100525
  Serious: Yes (Hospitalization)
  Sender: FDA-Public Use
  Company Number: IE-BAYER-200933239GPV

PATIENT
  Age: 43 Year
  Sex: Female
  Weight: 65 kg

DRUGS (5)
  1. MIRENA [Suspect]
     Indication: CONTRACEPTION
     Route: 015
     Dates: start: 19990401
  2. MIRENA [Suspect]
     Route: 015
     Dates: start: 20040201, end: 20090918
  3. VANIQA [Concomitant]
  4. GLUCOSAMINE [Concomitant]
  5. VENTOLIN [Concomitant]
     Route: 055

REACTIONS (6)
  - CHEST PAIN [None]
  - DYSPNOEA [None]
  - FATIGUE [None]
  - INFLUENZA LIKE ILLNESS [None]
  - NAUSEA [None]
  - PULMONARY EMBOLISM [None]
